FAERS Safety Report 8355581-2 (Version None)
Quarter: 2012Q2

REPORT INFORMATION
  Report Type: 
  Country: None (occurrence: None)
  Receive Date: 20120513
  Receipt Date: 20120509
  Transmission Date: 20120825
  Serious: Yes (Hospitalization)
  Sender: FDA-Public Use
  Company Number: FR-AMGEN-FRASP2012029111

PATIENT
  Age: 72 Year
  Sex: Male

DRUGS (4)
  1. CISPLATIN [Concomitant]
     Indication: LUNG ADENOCARCINOMA
     Dosage: 150 MG, UNK
     Route: 042
     Dates: start: 20120221
  2. CISPLATIN [Concomitant]
     Dosage: UNK
  3. NEULASTA [Suspect]
     Indication: CHEMOTHERAPY
     Dosage: UNK
     Route: 058
     Dates: start: 20120314, end: 20120314
  4. ALIMTA [Concomitant]
     Indication: LUNG ADENOCARCINOMA
     Dosage: 1000 MG, UNK
     Route: 042
     Dates: start: 20120221

REACTIONS (3)
  - PROTEINURIA [None]
  - NEPHRITIC SYNDROME [None]
  - HYPOALBUMINAEMIA [None]
